FAERS Safety Report 6290789-1 (Version None)
Quarter: 2009Q3

REPORT INFORMATION
  Report Type: 
  Country: None (occurrence: None)
  Receive Date: 20090730
  Receipt Date: 20090720
  Transmission Date: 20100115
  Serious: Yes (Other)
  Sender: FDA-Public Use
  Company Number: PHEH2009US07819

PATIENT
  Sex: Female

DRUGS (2)
  1. MIACALCIN [Suspect]
  2. FOSAMAX [Suspect]

REACTIONS (3)
  - DRUG INEFFECTIVE [None]
  - RIB FRACTURE [None]
  - SPINAL FRACTURE [None]
